FAERS Safety Report 9207786 (Version 1)
Quarter: 2013Q2

REPORT INFORMATION
  Report Type: Spontaneous
  Country: US (occurrence: US)
  Receive Date: 20130403
  Receipt Date: 20130403
  Transmission Date: 20140414
  Serious: Yes (Other)
  Sender: FDA-Public Use
  Company Number: US-GLAXOSMITHKLINE-A1017523A

PATIENT
  Age: 84 Year
  Sex: Female

DRUGS (7)
  1. ADVAIR [Suspect]
     Indication: PRODUCT USED FOR UNKNOWN INDICATION
     Dosage: 1PUFF TWICE PER DAY
     Route: 055
     Dates: start: 20130228, end: 20130304
  2. PROVENTIL [Concomitant]
  3. LEVOTHYROXINE [Concomitant]
  4. ZYLOPRIM [Concomitant]
  5. UNKNOWN [Concomitant]
  6. OMEGA 3 FISH OIL [Concomitant]
  7. VITAMIN D3 [Concomitant]

REACTIONS (3)
  - Eye haemorrhage [Unknown]
  - Vitreous floaters [Recovering/Resolving]
  - Intraocular pressure increased [Unknown]
